FAERS Safety Report 7008819-8 (Version None)
Quarter: 2010Q3

REPORT INFORMATION
  Report Type: 
  Country: None (occurrence: None)
  Receive Date: 20100922
  Receipt Date: 20100908
  Transmission Date: 20110219
  Serious: Yes (Hospitalization)
  Sender: FDA-Public Use
  Company Number: KR-MYLANLABS-2010S1016497

PATIENT
  Age: 72 Year
  Sex: Male

DRUGS (5)
  1. AZELASTINE HCL [Suspect]
     Indication: DERMATITIS ALLERGIC
     Route: 048
  2. EMEDASTINE [Suspect]
     Indication: DERMATITIS ALLERGIC
     Route: 048
  3. HYDROXYZINE [Suspect]
     Indication: DERMATITIS ALLERGIC
     Route: 048
  4. GLIMEPIRIDE [Concomitant]
     Route: 065
  5. AMLODIPINE [Concomitant]
     Route: 065

REACTIONS (3)
  - ABDOMINAL DISCOMFORT [None]
  - CHOREA [None]
  - NAUSEA [None]
